FAERS Safety Report 10751543 (Version 3)
Quarter: 2015Q1

REPORT INFORMATION
  Report Type: Report from Study
  Country: ES (occurrence: ES)
  Receive Date: 20150130
  Receipt Date: 20150223
  Transmission Date: 20150721
  Serious: Yes (Death, Hospitalization)
  Sender: FDA-Public Use
  Company Number: ES-ASTELLAS-2015US001849

PATIENT
  Age: 81 Year
  Sex: Female
  Weight: 33 kg

DRUGS (14)
  1. TRASTUZUMAB [Suspect]
     Active Substance: TRASTUZUMAB
     Dosage: UNK UNK, UNKNOWN FREQ.
     Route: 065
     Dates: start: 20140225, end: 20140603
  2. TRAMADOL [Concomitant]
     Active Substance: TRAMADOL
     Indication: FLANK PAIN
     Dosage: UNK UNK, UNKNOWN FREQ.
     Route: 065
  3. ENZALUTAMIDE [Suspect]
     Active Substance: ENZALUTAMIDE
     Indication: BREAST CANCER
     Route: 048
     Dates: start: 20141202, end: 20150116
  4. TRASTUZUMAB [Suspect]
     Active Substance: TRASTUZUMAB
     Route: 042
     Dates: start: 20141202, end: 20150116
  5. TRASTUZUMAB [Suspect]
     Active Substance: TRASTUZUMAB
     Indication: BREAST CANCER
     Dosage: 8 MG/KG, SINGLE DOSE
     Route: 042
     Dates: start: 20141202, end: 20141202
  6. NOLOTIL                            /06276702/ [Concomitant]
     Indication: FLANK PAIN
     Dosage: UNK UNK, UNKNOWN FREQ.
     Route: 048
  7. ORFIDAL [Concomitant]
     Active Substance: LORAZEPAM
     Indication: INSOMNIA
     Dosage: UNK UNK, UNKNOWN FREQ.
     Route: 048
  8. ATROVENT [Concomitant]
     Active Substance: IPRATROPIUM BROMIDE
     Indication: DYSPNOEA
     Dosage: UNK UNK, UNKNOWN FREQ.
     Route: 055
     Dates: start: 20150116, end: 20150116
  9. TRASTUZUMAB [Suspect]
     Active Substance: TRASTUZUMAB
     Dosage: 6 MG/KG, SINGLE DOSE
     Route: 042
     Dates: start: 20150108, end: 20150116
  10. METHYLPREDNISOLONE. [Concomitant]
     Active Substance: METHYLPREDNISOLONE
     Indication: DYSPNOEA
     Dosage: UNK UNK, UNKNOWN FREQ.
     Route: 042
     Dates: start: 20150116, end: 20150116
  11. TRASTUZUMAB [Suspect]
     Active Substance: TRASTUZUMAB
     Dosage: UNK, UNKNOWN FREQ.
     Route: 065
     Dates: start: 20090714, end: 20100921
  12. OMEPRAZOLE. [Concomitant]
     Active Substance: OMEPRAZOLE
     Indication: PROPHYLAXIS
     Dosage: UNK UNK, UNKNOWN FREQ.
     Route: 048
     Dates: end: 20150116
  13. TRASTUZUMAB [Suspect]
     Active Substance: TRASTUZUMAB
     Dosage: UNK UNK, UNKNOWN FREQ.
     Route: 065
     Dates: start: 20110505, end: 20120412
  14. PANTOPRAZOLE [Concomitant]
     Active Substance: PANTOPRAZOLE SODIUM
     Indication: PROPHYLAXIS
     Dosage: UNK UNK, UNKNOWN FREQ.
     Route: 042
     Dates: start: 20150116, end: 20150117

REACTIONS (1)
  - Abdominal pain [Fatal]

NARRATIVE: CASE EVENT DATE: 20150116
